FAERS Safety Report 16211488 (Version 1)
Quarter: 2019Q2

REPORT INFORMATION
  Report Type: Spontaneous
  Country: US (occurrence: US)
  Receive Date: 20190417
  Receipt Date: 20190417
  Transmission Date: 20190711
  Serious: Yes (Hospitalization)
  Sender: FDA-Public Use
  Company Number: None

PATIENT
  Age: 66 Year
  Sex: Female

DRUGS (3)
  1. TACROLIMUS. [Suspect]
     Active Substance: TACROLIMUS
     Route: 048
     Dates: start: 20171209
  2. SIROLIMUS. [Concomitant]
     Active Substance: SIROLIMUS
  3. PREDISONE [Concomitant]
     Active Substance: PREDNISONE

REACTIONS (1)
  - Arthropathy [None]

NARRATIVE: CASE EVENT DATE: 20190414
